FAERS Safety Report 11162897 (Version 1)
Quarter: 2015Q2

REPORT INFORMATION
  Report Type: Spontaneous
  Country: US (occurrence: US)
  Receive Date: 20150604
  Receipt Date: 20150604
  Transmission Date: 20150821
  Serious: No
  Sender: FDA-Public Use
  Company Number: US-SA-2015SA015935

PATIENT
  Age: 70 Year
  Sex: Female

DRUGS (5)
  1. FLEXPEN [Concomitant]
     Active Substance: UNSPECIFIED INGREDIENT
  2. LEVEMIR [Concomitant]
     Active Substance: INSULIN DETEMIR
  3. LANTUS SOLOSTAR [Suspect]
     Active Substance: INSULIN GLARGINE
     Indication: TYPE 2 DIABETES MELLITUS
     Dosage: DOSE:46 UNIT(S)
     Route: 065
     Dates: start: 201501
  4. SOLOSTAR [Concomitant]
     Active Substance: DEVICE
     Dates: start: 201501
  5. NOVOLOG [Concomitant]
     Active Substance: INSULIN ASPART

REACTIONS (2)
  - Blood glucose decreased [Unknown]
  - Breast pain [Unknown]

NARRATIVE: CASE EVENT DATE: 2015
